FAERS Safety Report 14113038 (Version 2)
Quarter: 2017Q4

REPORT INFORMATION
  Report Type: Report from Study
  Country: CN (occurrence: CN)
  Receive Date: 20171022
  Receipt Date: 20171030
  Transmission Date: 20180321
  Serious: Yes (Death, Hospitalization, Other)
  Sender: FDA-Public Use
  Company Number: PHHY2017CN141919

PATIENT
  Age: 50 Year
  Sex: Female

DRUGS (2)
  1. NILOTINIB [Suspect]
     Active Substance: NILOTINIB
     Indication: CHRONIC MYELOID LEUKAEMIA
     Dosage: 300 MG, BID
     Route: 048
     Dates: start: 20170928
  2. GLIVEC [Suspect]
     Active Substance: IMATINIB MESYLATE
     Indication: CHRONIC MYELOID LEUKAEMIA
     Dosage: 400 MG, QD
     Route: 048
     Dates: start: 20170105, end: 20170928

REACTIONS (7)
  - Haemorrhage intracranial [Fatal]
  - Anaemia [Unknown]
  - Drug ineffective [Unknown]
  - Platelet count decreased [Fatal]
  - Blast crisis in myelogenous leukaemia [Fatal]
  - Cytogenetic analysis abnormal [Unknown]
  - Leukopenia [Unknown]

NARRATIVE: CASE EVENT DATE: 20170902
